FAERS Safety Report 17430511 (Version 1)
Quarter: 2020Q1

REPORT INFORMATION
  Report Type: Spontaneous
  Country: US (occurrence: US)
  Receive Date: 20200218
  Receipt Date: 20200218
  Transmission Date: 20200409
  Serious: No
  Sender: FDA-Public Use
  Company Number: US-VERTEX PHARMACEUTICALS-2020-002729

PATIENT
  Age: 7 Year
  Sex: Male

DRUGS (1)
  1. TRIKAFTA [Suspect]
     Active Substance: ELEXACAFTOR\IVACAFTOR\TEZACAFTOR
     Indication: CYSTIC FIBROSIS
     Dosage: 1 ORANGE TABLET (100 MG VX-445/ 50 MG TEZ/ 75 MG IVA) IN AM AND ? BLUE TABLET (75 MG IVA) IN PM
     Route: 048

REACTIONS (1)
  - Off label use [Unknown]
